FAERS Safety Report 12659150 (Version 2)
Quarter: 2016Q3

REPORT INFORMATION
  Report Type: Spontaneous
  Country: US (occurrence: US)
  Receive Date: 20160817
  Receipt Date: 20160819
  Transmission Date: 20161109
  Serious: Yes (Disabling, Other)
  Sender: FDA-Public Use
  Company Number: US-PFIZER INC-2016387404

PATIENT
  Age: 52 Year
  Sex: Male
  Weight: 105.2 kg

DRUGS (1)
  1. LYRICA [Suspect]
     Active Substance: PREGABALIN
     Indication: NEURALGIA
     Dosage: UNK

REACTIONS (6)
  - Accident [Unknown]
  - Memory impairment [Unknown]
  - Head injury [Unknown]
  - Impaired work ability [Unknown]
  - Brain injury [Unknown]
  - Spinal fracture [Unknown]
